FAERS Safety Report 21016074 (Version 2)
Quarter: 2023Q1

REPORT INFORMATION
  Report Type: Report from Study
  Country: US (occurrence: US)
  Receive Date: 20220628
  Receipt Date: 20230101
  Transmission Date: 20230418
  Serious: Yes (Other)
  Sender: FDA-Public Use
  Company Number: US-ABBVIE-22K-163-4447933-00

PATIENT
  Sex: Female

DRUGS (2)
  1. HUMIRA [Suspect]
     Active Substance: ADALIMUMAB
     Indication: Rheumatoid arthritis
     Route: 058
  2. HUMIRA [Suspect]
     Active Substance: ADALIMUMAB
     Dosage: CITRATE FREE
     Route: 058
     Dates: start: 20190315

REACTIONS (9)
  - Retinal vein occlusion [Not Recovered/Not Resolved]
  - Mobility decreased [Unknown]
  - Visual impairment [Unknown]
  - Rheumatoid arthritis [Not Recovered/Not Resolved]
  - Eye haemorrhage [Recovering/Resolving]
  - Hypertension [Not Recovered/Not Resolved]
  - Dizziness [Unknown]
  - Palpitations [Unknown]
  - Dehydration [Unknown]
